FAERS Safety Report 24889221 (Version 1)
Quarter: 2025Q1

REPORT INFORMATION
  Report Type: Spontaneous
  Country: US (occurrence: None)
  Receive Date: 20250125
  Receipt Date: 20250125
  Transmission Date: 20250408
  Serious: Yes (Hospitalization)
  Sender: FDA-CTU
  Company Number: None

PATIENT
  Sex: Female
  Weight: 46.8 kg

DRUGS (2)
  1. PEMBROLIZUMAB [Suspect]
     Active Substance: PEMBROLIZUMAB
  2. ALIMTA [Suspect]
     Active Substance: PEMETREXED DISODIUM

REACTIONS (3)
  - Cough [None]
  - Dyspnoea [None]
  - Sepsis [None]

NARRATIVE: CASE EVENT DATE: 20241229
